FAERS Safety Report 5809142-7 (Version None)
Quarter: 2008Q3

REPORT INFORMATION
  Report Type: 
  Country: None (occurrence: None)
  Receive Date: 20080714
  Receipt Date: 20080702
  Transmission Date: 20090109
  Serious: Yes (Life-Threatening, Hospitalization)
  Sender: FDA-Public Use
  Company Number: JO-PFIZER INC-2008055240

PATIENT
  Age: 8 Year
  Sex: Female

DRUGS (2)
  1. ZITHROMAX [Suspect]
     Indication: PROPHYLAXIS
     Route: 042
     Dates: start: 20080701, end: 20080701
  2. HALOTHANE [Concomitant]

REACTIONS (3)
  - CARDIAC ARREST [None]
  - TACHYCARDIA [None]
  - VENTRICULAR FIBRILLATION [None]
